FAERS Safety Report 14167136 (Version 1)
Quarter: 2017Q4

REPORT INFORMATION
  Report Type: Report from Study
  Country: US (occurrence: US)
  Receive Date: 20171107
  Receipt Date: 20171107
  Transmission Date: 20180321
  Serious: Yes (Other)
  Sender: FDA-Public Use
  Company Number: US-BAYER-2017-108231

PATIENT
  Age: 78 Year
  Sex: Male

DRUGS (3)
  1. STIVARGA [Suspect]
     Active Substance: REGORAFENIB
     Indication: METASTASES TO LUNG
  2. STIVARGA [Suspect]
     Active Substance: REGORAFENIB
     Indication: INTESTINAL METASTASIS
     Dosage: 160 MG, QD
     Route: 048
     Dates: start: 201705
  3. STIVARGA [Suspect]
     Active Substance: REGORAFENIB
     Indication: METASTASES TO RECTUM
     Dosage: 120 MG, QD
     Route: 048
     Dates: start: 20170613, end: 20171024

REACTIONS (13)
  - Dyspnoea [None]
  - Constipation [None]
  - Urinary retention [None]
  - Peripheral swelling [None]
  - Pain in extremity [None]
  - Malignant neoplasm progression [None]
  - Off label use [None]
  - Gait disturbance [None]
  - Gait inability [None]
  - Pain in extremity [None]
  - Drug ineffective [None]
  - Adverse drug reaction [None]
  - Product use in unapproved indication [None]

NARRATIVE: CASE EVENT DATE: 2017
